FAERS Safety Report 6237173-4 (Version None)
Quarter: 2009Q2

REPORT INFORMATION
  Report Type: 
  Country: None (occurrence: None)
  Receive Date: 20090619
  Receipt Date: 20090511
  Transmission Date: 20091009
  Serious: No
  Sender: FDA-Public Use
  Company Number: US-ASTRAZENECA-2009UW12131

PATIENT
  Age: 43 Year
  Sex: Female
  Weight: 83.9 kg

DRUGS (3)
  1. SYMBICORT [Suspect]
     Dosage: 80/4.5 MCG 2 PUFFS TWO TIMES A DAY
     Route: 055
  2. SINGULAIR [Concomitant]
  3. FLUOXETINE HCL [Concomitant]

REACTIONS (1)
  - WEIGHT LOSS POOR [None]
